FAERS Safety Report 25116535 (Version 1)
Quarter: 2025Q1

REPORT INFORMATION
  Report Type: Spontaneous
  Country: US (occurrence: US)
  Receive Date: 20250325
  Receipt Date: 20250325
  Transmission Date: 20250409
  Serious: Yes (Other)
  Sender: ORGANON
  Company Number: US-ORGANON-O2503USA001977

PATIENT
  Age: 22 Year
  Sex: Female

DRUGS (4)
  1. NEXPLANON [Suspect]
     Active Substance: ETONOGESTREL
     Indication: Contraception
     Route: 059
     Dates: start: 2023
  2. PROGESTERONE [Suspect]
     Active Substance: PROGESTERONE
     Indication: Menometrorrhagia
     Dates: start: 2020, end: 202409
  3. ESTRADIOL [Suspect]
     Active Substance: ESTRADIOL
     Indication: Dysmenorrhoea
     Dates: start: 202502
  4. ESTRADIOL [Suspect]
     Active Substance: ESTRADIOL
     Indication: Heavy menstrual bleeding

REACTIONS (4)
  - Heavy menstrual bleeding [Not Recovered/Not Resolved]
  - Dysmenorrhoea [Not Recovered/Not Resolved]
  - Product use issue [Unknown]
  - Product prescribing issue [Unknown]

NARRATIVE: CASE EVENT DATE: 20230101
